FAERS Safety Report 5802997-1 (Version None)
Quarter: 2008Q3

REPORT INFORMATION
  Report Type: 
  Country: None (occurrence: None)
  Receive Date: 20080708
  Receipt Date: 20080702
  Transmission Date: 20090109
  Serious: Yes (Hospitalization)
  Sender: FDA-Public Use
  Company Number: US-ASTRAZENECA-2008UW12578

PATIENT
  Age: 30346 Day
  Sex: Male
  Weight: 80 kg

DRUGS (7)
  1. ATACAND [Suspect]
     Indication: HYPERTENSION
     Route: 048
     Dates: start: 20080310
  2. PLAVIX [Concomitant]
     Dates: start: 20010101
  3. ASPIRIN [Concomitant]
     Dates: start: 20060101
  4. MECLIZINE [Concomitant]
     Dates: start: 20050101
  5. DOXAZOSIN MESYLATE [Concomitant]
     Dates: start: 20070601
  6. MELOXICAM [Concomitant]
     Dates: start: 20070601
  7. FUROSEMIDE [Concomitant]
     Dates: start: 20080310

REACTIONS (1)
  - HYPOTENSION [None]
